FAERS Safety Report 7070857-7 (Version None)
Quarter: 2010Q4

REPORT INFORMATION
  Report Type: 
  Country: None (occurrence: None)
  Receive Date: 20101029
  Receipt Date: 20101014
  Transmission Date: 20110411
  Serious: Yes (Other)
  Sender: FDA-Public Use
  Company Number: PHHY2010US69458

PATIENT
  Sex: Female

DRUGS (8)
  1. RECLAST [Suspect]
     Dosage: UNK
  2. SYNTHROID [Concomitant]
  3. LEXAPRO [Concomitant]
  4. HYDROCHLOROTHIAZIDE [Concomitant]
  5. FELODIPINE [Concomitant]
  6. ZETIA [Concomitant]
  7. VITAMIN D [Concomitant]
  8. AMBIEN [Concomitant]

REACTIONS (7)
  - ARTHRITIS [None]
  - INFLUENZA LIKE ILLNESS [None]
  - INFUSION SITE CYST [None]
  - INFUSION SITE PAIN [None]
  - INSOMNIA [None]
  - PYREXIA [None]
  - STAPHYLOCOCCAL INFECTION [None]
